FAERS Safety Report 6506102-8 (Version None)
Quarter: 2009Q4

REPORT INFORMATION
  Report Type: 
  Country: None (occurrence: None)
  Receive Date: 20091218
  Receipt Date: 20091020
  Transmission Date: 20100525
  Serious: Yes (Hospitalization)
  Sender: FDA-Public Use
  Company Number: DE-WYE-H12651509

PATIENT
  Age: 85 Year
  Sex: Male

DRUGS (2)
  1. AMIODARONE HCL [Suspect]
     Indication: ATRIAL FIBRILLATION
     Route: 048
     Dates: start: 20091008, end: 20090101
  2. AMIODARONE HCL [Suspect]
     Dosage: UNSPECIFIED
     Route: 048
     Dates: start: 20090101

REACTIONS (3)
  - FOOD AVERSION [None]
  - NAUSEA [None]
  - TRANSAMINASES INCREASED [None]
